FAERS Safety Report 25267429 (Version 2)
Quarter: 2025Q2

REPORT INFORMATION
  Report Type: Report from Study
  Country: CN (occurrence: CN)
  Receive Date: 20250505
  Receipt Date: 20250511
  Transmission Date: 20250716
  Serious: Yes (Death, Hospitalization, Other)
  Sender: SANOFI AVENTIS
  Company Number: CN-SA-2025SA122628

PATIENT
  Age: 44 Year
  Sex: Male

DRUGS (3)
  1. BELUMOSUDIL MESYLATE [Suspect]
     Active Substance: BELUMOSUDIL MESYLATE
     Indication: Chronic graft versus host disease
     Dosage: 200 MG, QD
     Route: 048
     Dates: start: 20250328, end: 20250411
  2. TACROLIMUS [Concomitant]
     Active Substance: TACROLIMUS
  3. TACROLIMUS [Concomitant]
     Active Substance: TACROLIMUS

REACTIONS (4)
  - Pneumonia [Fatal]
  - Bacterial infection [Fatal]
  - Viral infection [Fatal]
  - Disease progression [Recovering/Resolving]

NARRATIVE: CASE EVENT DATE: 20250410
